FAERS Safety Report 6008480-5 (Version None)
Quarter: 2008Q4

REPORT INFORMATION
  Report Type: 
  Country: None (occurrence: None)
  Receive Date: 20081217
  Receipt Date: 20081209
  Transmission Date: 20090506
  Serious: Yes (Death, Life-Threatening)
  Sender: FDA-Public Use
  Company Number: AU-GENENTECH-271586

PATIENT
  Sex: Male
  Weight: 75 kg

DRUGS (1)
  1. ACTIVASE [Suspect]
     Indication: ISCHAEMIC STROKE
     Dosage: 0.9 MG/KG, UNK
     Route: 042
     Dates: start: 20080618, end: 20080618

REACTIONS (3)
  - DEATH [None]
  - HAEMORRHAGE [None]
  - HYPOTENSION [None]
